FAERS Safety Report 16668916 (Version 1)
Quarter: 2019Q3

REPORT INFORMATION
  Report Type: Report from Study
  Country: GB (occurrence: GB)
  Receive Date: 20190805
  Receipt Date: 20190805
  Transmission Date: 20191004
  Serious: Yes (Other)
  Sender: FDA-Public Use
  Company Number: GB-PFIZER INC-2019321290

PATIENT

DRUGS (3)
  1. CISPLATIN. [Suspect]
     Active Substance: CISPLATIN
     Indication: NEOPLASM
     Dosage: 70 MG/M2, CYCLIC (D8, 6 X 21D CYCLES)
     Route: 042
  2. GEMCITABINE HYDROCHLORIDE. [Suspect]
     Active Substance: GEMCITABINE HYDROCHLORIDE
     Indication: NEOPLASM MALIGNANT
     Dosage: 1000 MG/M2, CYCLIC (DAY (D) 8 +15, FOR UP TO 6 X 21D CYCLES)
     Route: 042
  3. GUADECITABINE [Suspect]
     Active Substance: GUADECITABINE
     Indication: NEOPLASM
     Dosage: 20 MG/M2, CYCLIC (D1-5, FOR UP TO 6 X 21D CYCLES)
     Route: 058

REACTIONS (1)
  - Embolism [Unknown]
